FAERS Safety Report 5811631-6 (Version None)
Quarter: 2008Q3

REPORT INFORMATION
  Report Type: 
  Country: None (occurrence: None)
  Receive Date: 20080711
  Receipt Date: 20080711
  Transmission Date: 20090109
  Serious: Yes (Other)
  Sender: FDA-Public Use
  Company Number: None

PATIENT
  Age: 69 Year
  Sex: Male
  Weight: 68.0396 kg

DRUGS (1)
  1. CRESTOR [Suspect]
     Indication: BLOOD CHOLESTEROL INCREASED
     Dosage: 2 1/2 MG. ONCE DAY ORAL
     Route: 048
     Dates: start: 20080325

REACTIONS (3)
  - MUSCLE INJURY [None]
  - NERVE INJURY [None]
  - PAIN IN EXTREMITY [None]
